FAERS Safety Report 25906700 (Version 2)
Quarter: 2025Q4

REPORT INFORMATION
  Report Type: Spontaneous
  Country: CA (occurrence: CA)
  Receive Date: 20251010
  Receipt Date: 20251106
  Transmission Date: 20260118
  Serious: Yes (Other)
  Sender: CELLTRION
  Company Number: CA-PFIZER INC-PV202500098750

PATIENT

DRUGS (4)
  1. INFLECTRA [Suspect]
     Active Substance: INFLIXIMAB-DYYB
     Indication: Crohn^s disease
     Dosage: 300 MG, EVERY 8 WEEKS
     Route: 042
     Dates: start: 20250611
  2. INFLECTRA [Suspect]
     Active Substance: INFLIXIMAB-DYYB
     Dosage: 300 MG, EVERY 8 WEEKS
     Route: 042
     Dates: start: 20250813
  3. TETANUS TOXOID ADSORBED (VACCINE) [Concomitant]
     Active Substance: TETANUS TOXOIDS
     Indication: Immunisation
     Dosage: DOSE NUMBER UNKNOWN, SINGLE
     Dates: start: 20250618, end: 20250618
  4. TETANUS TOXOID ADSORBED (VACCINE) [Concomitant]
     Active Substance: TETANUS TOXOIDS
     Indication: Immunisation
     Dosage: DOSE NUMBER UNKNOWN, SINGLE
     Dates: start: 20250618, end: 20250618

REACTIONS (6)
  - Neck mass [Not Recovered/Not Resolved]
  - Wound [Recovered/Resolved]
  - Fatigue [Not Recovered/Not Resolved]
  - Headache [Not Recovered/Not Resolved]
  - Dyspnoea [Not Recovered/Not Resolved]
  - Dysphagia [Not Recovered/Not Resolved]

NARRATIVE: CASE EVENT DATE: 20250616
